FAERS Safety Report 9787338 (Version 1)
Quarter: 2013Q4

REPORT INFORMATION
  Report Type: Spontaneous
  Country: BR (occurrence: BR)
  Receive Date: 20131230
  Receipt Date: 20131230
  Transmission Date: 20140711
  Serious: Yes (Hospitalization)
  Sender: FDA-Public Use
  Company Number: BR-BIOGENIDEC-2013BI123709

PATIENT
  Age: 72 Year
  Sex: Female

DRUGS (4)
  1. AVONEX [Suspect]
     Indication: MULTIPLE SCLEROSIS
     Route: 030
     Dates: start: 20120328, end: 20120901
  2. AVONEX [Suspect]
     Indication: MULTIPLE SCLEROSIS
     Route: 030
     Dates: start: 20120908
  3. SIMVASTATIN [Concomitant]
  4. ACETYLSALICYLIC ACID [Concomitant]

REACTIONS (3)
  - Abdominal distension [Unknown]
  - Urinary tract infection [Unknown]
  - Flatulence [Unknown]
